FAERS Safety Report 24317890 (Version 6)
Quarter: 2025Q1

REPORT INFORMATION
  Report Type: Spontaneous
  Country: US (occurrence: US)
  Receive Date: 20240913
  Receipt Date: 20250124
  Transmission Date: 20250408
  Serious: No
  Sender: PFIZER
  Company Number: US-PFIZER INC-PV202400109191

PATIENT
  Age: 39 Year
  Sex: Female

DRUGS (1)
  1. SOMAVERT [Suspect]
     Active Substance: PEGVISOMANT
     Indication: Pituitary tumour benign
     Dosage: 10 MG, DAILY
     Route: 058
     Dates: start: 20240820

REACTIONS (7)
  - Injection site haemorrhage [Unknown]
  - Injection site bruising [Unknown]
  - Liquid product physical issue [Unknown]
  - Poor quality product administered [Unknown]
  - Needle issue [Unknown]
  - Device leakage [Unknown]
  - Off label use [Unknown]
